FAERS Safety Report 5230998-3 (Version None)
Quarter: 2007Q1

REPORT INFORMATION
  Report Type: 
  Country: None (occurrence: None)
  Receive Date: 20070205
  Receipt Date: 20070205
  Transmission Date: 20070707
  Serious: Yes (Other)
  Sender: FDA-Public Use
  Company Number: None

PATIENT
  Age: 21 Year
  Sex: Female
  Weight: 123.832 kg

DRUGS (3)
  1. DULOXETINE 120 MG LILLY [Suspect]
     Indication: MAJOR DEPRESSION
     Dosage: 120 MG ONCE A DAY PO
     Route: 048
     Dates: start: 20060929, end: 20061226
  2. CLARITIN [Concomitant]
  3. CELEXA [Concomitant]

REACTIONS (3)
  - ABORTION SPONTANEOUS [None]
  - DRUG EXPOSURE DURING PREGNANCY [None]
  - PREGNANCY [None]
